FAERS Safety Report 20312494 (Version 1)
Quarter: 2022Q1

REPORT INFORMATION
  Report Type: Report from Study
  Country: CA (occurrence: CA)
  Receive Date: 20220110
  Receipt Date: 20220110
  Transmission Date: 20220423
  Serious: Yes (Hospitalization)
  Sender: FDA-Public Use
  Company Number: CA-ABBVIE-22K-028-4224350-00

PATIENT
  Age: 57 Year
  Sex: Male

DRUGS (4)
  1. LUPRON DEPOT [Suspect]
     Active Substance: LEUPROLIDE ACETATE
     Indication: Prostate cancer
     Route: 030
     Dates: start: 20211220
  2. COVID-19 VACCINE [Concomitant]
     Indication: COVID-19 immunisation
     Dates: start: 2021, end: 2021
  3. COVID-19 VACCINE [Concomitant]
     Dates: start: 2021, end: 2021
  4. COVID-19 VACCINE [Concomitant]
     Dates: start: 20211222, end: 20211222

REACTIONS (6)
  - Abdominal abscess [Unknown]
  - Myalgia [Unknown]
  - Pyrexia [Unknown]
  - Abdominal pain [Unknown]
  - Groin pain [Unknown]
  - Influenza [Unknown]

NARRATIVE: CASE EVENT DATE: 20211201
